FAERS Safety Report 5400727-9 (Version None)
Quarter: 2007Q3

REPORT INFORMATION
  Report Type: 
  Country: None (occurrence: None)
  Receive Date: 20070725
  Receipt Date: 20070717
  Transmission Date: 20080115
  Serious: Yes (Other)
  Sender: FDA-Public Use
  Company Number: LTI2007A00182

PATIENT
  Sex: Female

DRUGS (2)
  1. ACTOS [Suspect]
     Dosage: ORAL
     Route: 048
     Dates: start: 20040101
  2. AVANDIA [Concomitant]

REACTIONS (2)
  - BEDRIDDEN [None]
  - SPINAL FRACTURE [None]
